FAERS Safety Report 8772172 (Version 3)
Quarter: 2014Q1

REPORT INFORMATION
  Report Type: Spontaneous
  Country: US (occurrence: US)
  Receive Date: 20120906
  Receipt Date: 20140326
  Transmission Date: 20141002
  Serious: Yes (Hospitalization)
  Sender: FDA-Public Use
  Company Number: US-BIOGENIDEC-2012BI033962

PATIENT
  Age: 54 Year
  Sex: Female

DRUGS (6)
  1. AVONEX [Suspect]
     Indication: MULTIPLE SCLEROSIS
     Route: 030
     Dates: start: 19960801
  2. BACLOFEN [Concomitant]
  3. TEGRETOL [Concomitant]
  4. LIPITOR [Concomitant]
  5. ZETIA [Concomitant]
  6. CATAPRESS [Concomitant]

REACTIONS (1)
  - Intervertebral disc operation [Recovered/Resolved]
